FAERS Safety Report 15402255 (Version 3)
Quarter: 2018Q4

REPORT INFORMATION
  Report Type: Spontaneous
  Country: FR (occurrence: FR)
  Receive Date: 20180919
  Receipt Date: 20181126
  Transmission Date: 20190204
  Serious: No
  Sender: FDA-Public Use
  Company Number: FR-PFIZER INC-2018372101

PATIENT
  Age: 62 Year
  Sex: Female
  Weight: 55 kg

DRUGS (1)
  1. ESTRING [Suspect]
     Active Substance: ESTRADIOL
     Route: 067

REACTIONS (1)
  - Vulvovaginal candidiasis [Unknown]

NARRATIVE: CASE EVENT DATE: 201805
